FAERS Safety Report 7304464-5 (Version None)
Quarter: 2011Q1

REPORT INFORMATION
  Report Type: 
  Country: None (occurrence: None)
  Receive Date: 20110221
  Receipt Date: 20110216
  Transmission Date: 20110831
  Serious: Yes (Other)
  Sender: FDA-Public Use
  Company Number: US-RB-020081-10

PATIENT
  Age: 42 Year
  Sex: Male

DRUGS (1)
  1. SUBOXONE [Suspect]
     Indication: PRODUCT USED FOR UNKNOWN INDICATION
     Dosage: UNKNOWN DOSING DETAILS
     Route: 065

REACTIONS (12)
  - GASTROINTESTINAL DISORDER [None]
  - LOWER RESPIRATORY TRACT INFECTION [None]
  - URINARY TRACT DISORDER [None]
  - CONSTIPATION [None]
  - BRONCHITIS [None]
  - LUNG CYST [None]
  - CONTUSION [None]
  - SKELETAL INJURY [None]
  - FALL [None]
  - MUSCLE STRAIN [None]
  - TOOTH DISORDER [None]
  - PYREXIA [None]
